FAERS Safety Report 8046538-X (Version None)
Quarter: 2012Q1

REPORT INFORMATION
  Report Type: 
  Country: None (occurrence: None)
  Receive Date: 20120113
  Receipt Date: 20111226
  Transmission Date: 20120608
  Serious: Yes (Hospitalization)
  Sender: FDA-Public Use
  Company Number: UA-MERCK-1201USA01285

PATIENT
  Age: 29 Year
  Sex: Female

DRUGS (2)
  1. METFORMIN HYDROCHLORIDE [Suspect]
     Indication: TYPE 2 DIABETES MELLITUS
     Route: 065
     Dates: start: 20110801
  2. JANUVIA [Suspect]
     Indication: TYPE 2 DIABETES MELLITUS
     Route: 048
     Dates: start: 20111101, end: 20111107

REACTIONS (5)
  - HYPERTENSION [None]
  - RESPIRATORY DISORDER [None]
  - CONFUSIONAL STATE [None]
  - URINARY RETENTION [None]
  - DRUG INTERACTION [None]
